FAERS Safety Report 4689401-4 (Version None)
Quarter: 2005Q2

REPORT INFORMATION
  Report Type: 
  Country: None (occurrence: None)
  Receive Date: 20050608
  Receipt Date: 20050215
  Transmission Date: 20051028
  Serious: No
  Sender: FDA-Public Use
  Company Number: 2005-BP-02507BP

PATIENT
  Age: 66 Year
  Sex: Female

DRUGS (9)
  1. SPIRIVA [Suspect]
     Indication: CHRONIC OBSTRUCTIVE PULMONARY DISEASE
     Dosage: 18 MCG (18 MCG, 1 IN 1 D), IH
     Route: 055
     Dates: start: 20040601
  2. SPIRIVA [Suspect]
  3. PLAVIX [Concomitant]
  4. ACETYLSALICYLIC ACID SRT [Concomitant]
  5. PROCARDIA [Concomitant]
  6. EVISTA [Concomitant]
  7. CELEBREX [Concomitant]
  8. SEREVENT [Concomitant]
  9. DUONEB [Concomitant]

REACTIONS (2)
  - DYSGEUSIA [None]
  - DYSPNOEA EXACERBATED [None]
